FAERS Safety Report 10208740 (Version 1)
Quarter: 2014Q2

REPORT INFORMATION
  Report Type: Spontaneous
  Country: SE (occurrence: SE)
  Receive Date: 20140530
  Receipt Date: 20140530
  Transmission Date: 20141212
  Serious: Yes (Hospitalization)
  Sender: FDA-Public Use
  Company Number: SE-AMGEN-SWESP2014039917

PATIENT
  Age: 25 Year
  Sex: Female

DRUGS (12)
  1. ENBREL [Suspect]
     Indication: PRODUCT USED FOR UNKNOWN INDICATION
     Dosage: 50 MG, WEEKLY
     Route: 058
     Dates: start: 20100114, end: 2013
  2. GARDASIL [Suspect]
     Indication: IMMUNISATION
     Dosage: 1 DF, SINGLE
     Route: 058
     Dates: start: 20130801, end: 20130801
  3. GARDASIL [Suspect]
     Dosage: 1 DF, SINGLE
     Route: 058
     Dates: start: 20131002, end: 20131002
  4. GARDASIL [Suspect]
     Dosage: 1 DF, SINGLE
     Route: 058
     Dates: start: 20140130, end: 20140130
  5. PREDNISOLONE [Concomitant]
     Dosage: UNK UNK, UNK
  6. RELIFEX [Concomitant]
     Indication: PAIN
     Dosage: UNK UNK, UNK
  7. ALVEDON [Concomitant]
     Indication: PAIN
     Dosage: UNK UNK, UNK
  8. CITODON [Concomitant]
     Dosage: UNK UNK, UNK
  9. CALCICHEW-D3 [Concomitant]
     Dosage: UNK UNK, UNK
  10. YASMIN 28 [Concomitant]
     Dosage: UNK UNK, UNK
  11. SYMBICORT TURBOHALER [Concomitant]
     Dosage: 160 MICROGRAM/ 4.5 MICROGRAM
  12. SINGULAIR [Concomitant]
     Dosage: 10 MG, UNK

REACTIONS (1)
  - Small fibre neuropathy [Not Recovered/Not Resolved]
